FAERS Safety Report 6747630-X (Version None)
Quarter: 2010Q2

REPORT INFORMATION
  Report Type: 
  Country: None (occurrence: None)
  Receive Date: 20100528
  Receipt Date: 20100520
  Transmission Date: 20101027
  Serious: Yes (Other)
  Sender: FDA-Public Use
  Company Number: PHHO2010DE05807

PATIENT
  Sex: Male

DRUGS (6)
  1. BLINDED ALISKIREN ALI+TAB+CF [Suspect]
     Dosage: DOUBLE BLIND
     Route: 048
     Dates: start: 20091218
  2. BLINDED ENALAPRIL COMP-ENA+ [Suspect]
     Dosage: DOUBLE BLIND
     Route: 048
     Dates: start: 20091218
  3. BLINDED NO TREATMENT RECEIVED NOMED [Suspect]
     Dosage: DOUBLE BLIND
     Route: 048
     Dates: start: 20091218
  4. ALISKIREN [Suspect]
     Indication: CARDIAC FAILURE
     Dosage: UNK
     Route: 048
     Dates: start: 20091120
  5. COMPARATOR ENALAPRIL [Suspect]
     Indication: CARDIAC FAILURE
     Dosage: UNK
     Route: 048
     Dates: start: 20091120
  6. METFORMIN HYDROCHLORIDE [Concomitant]
     Indication: DIABETES MELLITUS
     Dosage: UNK
     Dates: start: 20100331

REACTIONS (4)
  - BLOOD CREATININE INCREASED [None]
  - BLOOD POTASSIUM INCREASED [None]
  - GLOMERULAR FILTRATION RATE DECREASED [None]
  - RENAL FAILURE [None]
